FAERS Safety Report 15647320 (Version 4)
Quarter: 2019Q1

REPORT INFORMATION
  Report Type: Spontaneous
  Country: FR (occurrence: FR)
  Receive Date: 20181122
  Receipt Date: 20190213
  Transmission Date: 20190417
  Serious: Yes (Death)
  Sender: FDA-Public Use
  Company Number: FR-REGENERON PHARMACEUTICALS, INC.-2018-45760

PATIENT

DRUGS (1)
  1. EYLEA [Suspect]
     Active Substance: AFLIBERCEPT
     Indication: AGE-RELATED MACULAR DEGENERATION
     Dosage: UNK, RECEIVED TOTAL OF 6 DOSES, WITH LAST DOSE PRIOR TO EVENT ON 09-OCT-2018
     Dates: start: 20171219, end: 20181009

REACTIONS (4)
  - Pain in extremity [Unknown]
  - General physical health deterioration [Fatal]
  - Myocardial infarction [Fatal]
  - Upper limb fracture [Unknown]

NARRATIVE: CASE EVENT DATE: 20181009
